FAERS Safety Report 8202020-8 (Version None)
Quarter: 2012Q1

REPORT INFORMATION
  Report Type: 
  Country: None (occurrence: None)
  Receive Date: 20120312
  Receipt Date: 20120307
  Transmission Date: 20120608
  Serious: Yes (Other)
  Sender: FDA-Public Use
  Company Number: FR-MERCK-1203FRA00024

PATIENT
  Age: 65 Year
  Sex: Male

DRUGS (10)
  1. JANUVIA [Suspect]
     Indication: TYPE 2 DIABETES MELLITUS
     Route: 048
     Dates: start: 20090501
  2. ROSIGLITAZONE [Suspect]
     Route: 048
     Dates: start: 20071001, end: 20101201
  3. GLICLAZIDE [Suspect]
     Route: 048
     Dates: start: 20080501, end: 20090501
  4. CLONAZEPAM [Suspect]
     Route: 048
     Dates: start: 20090101
  5. ATORVASTATIN CALCIUM [Suspect]
     Route: 048
     Dates: start: 20090101
  6. METFORMIN HYDROCHLORIDE [Suspect]
     Indication: TYPE 2 DIABETES MELLITUS
     Route: 048
     Dates: end: 20071001
  7. IRBESARTAN [Suspect]
     Route: 048
     Dates: start: 20090901
  8. PIOGLITAZONE HYDROCHLORIDE [Concomitant]
     Route: 048
     Dates: start: 20101201, end: 20110701
  9. METFORMIN PAMOATE [Suspect]
     Route: 048
     Dates: start: 20071001
  10. RABEPRAZOLE SODIUM [Suspect]
     Route: 048
     Dates: start: 20090101

REACTIONS (1)
  - PROSTATE CANCER [None]
